FAERS Safety Report 9111159 (Version 1)
Quarter: 2013Q1

REPORT INFORMATION
  Report Type: Spontaneous
  Country: US (occurrence: US)
  Receive Date: 20130219
  Receipt Date: 20130219
  Transmission Date: 20140127
  Serious: No
  Sender: FDA-Public Use
  Company Number: US-BRISTOL-MYERS SQUIBB COMPANY-16978983

PATIENT
  Age: 61 Year
  Sex: Female
  Weight: 54.42 kg

DRUGS (5)
  1. ABATACEPT SUBQ INJECTION 125MG/ML [Suspect]
     Indication: RHEUMATOID ARTHRITIS
     Dosage: LAST DOSE ON 19SEP12
     Route: 058
     Dates: start: 20120919
  2. PREDNISONE [Suspect]
  3. FOLIC ACID [Concomitant]
  4. MELOXICAM [Concomitant]
  5. METHOTREXATE [Concomitant]

REACTIONS (1)
  - Weight increased [Unknown]
